FAERS Safety Report 16710712 (Version 1)
Quarter: 2019Q3

REPORT INFORMATION
  Report Type: Report from Study
  Country: US (occurrence: US)
  Receive Date: 20190816
  Receipt Date: 20190816
  Transmission Date: 20191004
  Serious: Yes (Other)
  Sender: FDA-Public Use
  Company Number: US-ROCHE-2372284

PATIENT
  Age: 53 Year
  Sex: Female
  Weight: 72.64 kg

DRUGS (6)
  1. CBD OIL [Concomitant]
     Active Substance: CANNABIDIOL\HERBALS
     Dosage: YES
     Route: 065
  2. ALPRAZOLAM. [Concomitant]
     Active Substance: ALPRAZOLAM
     Indication: ANXIETY
     Dosage: YES
     Route: 065
  3. BETHANECHOL [Concomitant]
     Active Substance: BETHANECHOL
     Indication: URINARY RETENTION
     Dosage: YES
     Route: 065
  4. GABAPENTIN. [Concomitant]
     Active Substance: GABAPENTIN
     Indication: HOT FLUSH
     Route: 065
  5. GABAPENTIN. [Concomitant]
     Active Substance: GABAPENTIN
     Indication: MUSCLE SPASMS
     Dosage: NO
     Route: 065
  6. OCREVUS [Suspect]
     Active Substance: OCRELIZUMAB
     Indication: RELAPSING-REMITTING MULTIPLE SCLEROSIS
     Dosage: DATE OF TREATMENT-17-APR-2018, 01-MAY-2018,17-MAY-2018,24-OCT-2018
     Route: 065
     Dates: start: 201804

REACTIONS (5)
  - Intentional product misuse [Unknown]
  - Sinusitis [Not Recovered/Not Resolved]
  - Blood pressure decreased [Unknown]
  - Urinary tract infection [Recovered/Resolved]
  - Off label use [Unknown]

NARRATIVE: CASE EVENT DATE: 201907
